FAERS Safety Report 8798121 (Version 1)
Quarter: 2012Q4

REPORT INFORMATION
  Report Type: 
  Country: US (occurrence: US)
  Receive Date: 20120920
  Receipt Date: 20120920
  Transmission Date: 20130627
  Serious: No
  Sender: FDA-Public Use
  Company Number: US-BAUSCH-2012BL003028

PATIENT
  Age: 89 Year
  Sex: Male

DRUGS (7)
  1. PREDNISOLONE SODIUM PHOSPHATE [Suspect]
     Indication: POSTOPERATIVE CARE
     Route: 047
     Dates: start: 201110, end: 201111
  2. AVODART /USA/ [Concomitant]
     Route: 048
  3. TAMSULOSIN [Concomitant]
     Route: 048
  4. ZANTAC [Concomitant]
     Route: 048
  5. PLAVIX /UNK/ [Concomitant]
     Route: 048
  6. ATENOLOL [Concomitant]
     Route: 048
  7. LISINOPRIL [Concomitant]
     Route: 048

REACTIONS (4)
  - Burning sensation [Not Recovered/Not Resolved]
  - Instillation site pain [Recovered/Resolved]
  - Hypoaesthesia [Not Recovered/Not Resolved]
  - Oedema peripheral [Recovered/Resolved]
